FAERS Safety Report 4455733-8 (Version None)
Quarter: 2004Q3

REPORT INFORMATION
  Report Type: 
  Country: None (occurrence: None)
  Receive Date: 20040922
  Receipt Date: 20040913
  Transmission Date: 20050211
  Serious: Yes (Life-Threatening, Hospitalization)
  Sender: FDA-Public Use
  Company Number: GB-ABBOTT-04P-167-0273167-00

PATIENT
  Age: 19 Year
  Sex: Female
  Weight: 30 kg

DRUGS (5)
  1. HUMIRA [Suspect]
     Indication: JUVENILE ARTHRITIS
     Route: 058
     Dates: start: 20040301, end: 20040606
  2. ETANERCEPT [Concomitant]
     Indication: JUVENILE ARTHRITIS
  3. INDOMETHACIN [Concomitant]
     Indication: JUVENILE ARTHRITIS
  4. DIHYDROCODEINE [Concomitant]
     Indication: JUVENILE ARTHRITIS
  5. PREDNISOLONE [Concomitant]
     Indication: JUVENILE ARTHRITIS

REACTIONS (1)
  - CONVULSION [None]
